FAERS Safety Report 9486308 (Version 1)
Quarter: 2013Q3

REPORT INFORMATION
  Report Type: Spontaneous
  Country: US (occurrence: US)
  Receive Date: 20130829
  Receipt Date: 20130829
  Transmission Date: 20140515
  Serious: No
  Sender: FDA-Public Use
  Company Number: US-PFIZER INC-2013247431

PATIENT
  Sex: Male

DRUGS (2)
  1. SUTENT [Suspect]
     Dosage: UNK
  2. XANAX [Concomitant]
     Dosage: UNK
     Dates: start: 2007

REACTIONS (2)
  - Haemoptysis [Unknown]
  - Hair colour changes [Unknown]
